FAERS Safety Report 23755928 (Version 1)
Quarter: 2024Q2

REPORT INFORMATION
  Report Type: Spontaneous
  Country: US (occurrence: US)
  Receive Date: 20240418
  Receipt Date: 20240418
  Transmission Date: 20240716
  Serious: Yes (Death, Other)
  Sender: FDA-Public Use
  Company Number: US-ELI_LILLY_AND_COMPANY-US202404009131

PATIENT
  Age: 45 Year
  Sex: Female

DRUGS (12)
  1. SELPERCATINIB [Suspect]
     Active Substance: SELPERCATINIB
     Indication: Gene mutation
     Dosage: 80 MG, BID
     Route: 048
  2. SELPERCATINIB [Suspect]
     Active Substance: SELPERCATINIB
     Dosage: 160 MG, BID
     Route: 048
  3. SELPERCATINIB [Suspect]
     Active Substance: SELPERCATINIB
     Dosage: 80 MG, BID
     Route: 048
  4. SELPERCATINIB [Suspect]
     Active Substance: SELPERCATINIB
     Dosage: 160 MG, BID
     Route: 048
  5. LAROTRECTINIB [Suspect]
     Active Substance: LAROTRECTINIB
     Indication: NTRK gene fusion cancer
     Dosage: 50 MG, BID
     Route: 048
  6. LAROTRECTINIB [Suspect]
     Active Substance: LAROTRECTINIB
     Dosage: 100 MG, BID
     Route: 048
  7. ENTRECTINIB [Suspect]
     Active Substance: ENTRECTINIB
     Indication: Gene mutation
     Dosage: 200 MG, DAILY
     Route: 065
  8. ENTRECTINIB [Suspect]
     Active Substance: ENTRECTINIB
     Dosage: 400 MG, DAILY
     Route: 065
  9. ENTRECTINIB [Suspect]
     Active Substance: ENTRECTINIB
     Dosage: 200 MG, UNKNOWN
     Route: 065
  10. ENTRECTINIB [Suspect]
     Active Substance: ENTRECTINIB
     Dosage: 400 MG, UNKNOWN
     Route: 065
  11. EVEROLIMUS [Suspect]
     Active Substance: EVEROLIMUS
     Indication: Product used for unknown indication
     Dosage: UNK, UNKNOWN
     Route: 065
  12. CABOZANTINIB [Suspect]
     Active Substance: CABOZANTINIB
     Indication: Product used for unknown indication
     Dosage: UNK, UNKNOWN
     Route: 065

REACTIONS (18)
  - Death [Fatal]
  - Drug resistance mutation [Unknown]
  - Metastases to central nervous system [Unknown]
  - Malignant neoplasm progression [Unknown]
  - Liver function test increased [Unknown]
  - Neuropathy peripheral [Unknown]
  - Memory impairment [Unknown]
  - Visual impairment [Unknown]
  - Dry eye [Unknown]
  - Blood calcitonin increased [Unknown]
  - Off label use [Unknown]
  - Pain [Unknown]
  - Dry mouth [Unknown]
  - Fatigue [Recovering/Resolving]
  - Therapy partial responder [Unknown]
  - Dry mouth [Unknown]
  - Fatigue [Unknown]
  - Diarrhoea [Unknown]
